FAERS Safety Report 4559175-6 (Version None)
Quarter: 2005Q1

REPORT INFORMATION
  Report Type: 
  Country: None (occurrence: None)
  Receive Date: 20050120
  Receipt Date: 20050120
  Transmission Date: 20050727
  Serious: Yes (Death)
  Sender: FDA-Public Use
  Company Number: None

PATIENT

DRUGS (1)
  1. WARFARIN SODIUM [Suspect]
     Dosage: 5MG PO QD
     Route: 048

REACTIONS (1)
  - CEREBRAL HAEMORRHAGE [None]
